FAERS Safety Report 8161199-7 (Version None)
Quarter: 2012Q1

REPORT INFORMATION
  Report Type: 
  Country: None (occurrence: None)
  Receive Date: 20120103
  Receipt Date: 20111121
  Transmission Date: 20120608
  Serious: No
  Sender: FDA-Public Use
  Company Number: AE-2011-003777

PATIENT
  Age: 59 Year
  Sex: Female
  Weight: 68.0396 kg

DRUGS (5)
  1. RIBAVIRIN [Concomitant]
  2. TRAZODONE HCL [Concomitant]
  3. PROZAC [Concomitant]
  4. INCIVEK [Suspect]
     Dosage: 2250 MG (750 MG, EVERY 7-9 HOURS),ORAL
     Route: 048
     Dates: start: 20111110
  5. PEGASYS [Concomitant]

REACTIONS (4)
  - VERTIGO [None]
  - DEPRESSED MOOD [None]
  - DECREASED APPETITE [None]
  - RIB FRACTURE [None]
